FAERS Safety Report 9874302 (Version 2)
Quarter: 2014Q1

REPORT INFORMATION
  Report Type: Spontaneous
  Country: US (occurrence: US)
  Receive Date: 20140206
  Receipt Date: 20140206
  Transmission Date: 20141002
  Serious: No
  Sender: FDA-Public Use
  Company Number: US-ACORDA-ACO_35019_2013

PATIENT
  Age: 57 Year
  Sex: Female
  Weight: 57 kg

DRUGS (7)
  1. AMPYRA [Suspect]
     Indication: BALANCE DISORDER
     Dosage: 10 MG, BID
     Route: 048
     Dates: start: 20130316, end: 2013
  2. AMPYRA [Suspect]
     Indication: GAIT DISTURBANCE
  3. COPAXONE [Concomitant]
     Indication: PRODUCT USED FOR UNKNOWN INDICATION
     Dosage: UNK, QD
     Route: 058
     Dates: start: 2008
  4. LEVOTHYROXINE [Concomitant]
     Indication: PRODUCT USED FOR UNKNOWN INDICATION
     Dosage: 75 MCG, UNK
     Route: 048
     Dates: start: 2003
  5. ENJUVIA [Concomitant]
     Indication: PRODUCT USED FOR UNKNOWN INDICATION
     Dosage: 0.3 MG, QD
     Route: 048
     Dates: start: 2005
  6. LISINOPRIL [Concomitant]
     Indication: PRODUCT USED FOR UNKNOWN INDICATION
     Dosage: 5 MG, QD
     Route: 048
     Dates: start: 2003
  7. VYTORIN [Concomitant]
     Indication: PRODUCT USED FOR UNKNOWN INDICATION
     Dosage: 10/40MG, QD
     Route: 048
     Dates: start: 2003

REACTIONS (7)
  - Presyncope [Recovered/Resolved]
  - Throat irritation [Unknown]
  - Hyperhidrosis [Not Recovered/Not Resolved]
  - Initial insomnia [Recovered/Resolved]
  - Middle insomnia [Recovered/Resolved]
  - Asthenia [Recovering/Resolving]
  - Dizziness [Not Recovered/Not Resolved]
